FAERS Safety Report 6939350-3 (Version None)
Quarter: 2010Q3

REPORT INFORMATION
  Report Type: 
  Country: None (occurrence: None)
  Receive Date: 20100824
  Receipt Date: 20100810
  Transmission Date: 20110219
  Serious: No
  Sender: FDA-Public Use
  Company Number: CA-US-EMD SERONO, INC.-7013879

PATIENT
  Sex: Male

DRUGS (4)
  1. SAIZEN [Suspect]
     Indication: POLYCHONDRITIS
     Dates: start: 20100707, end: 20100101
  2. TOCILEUMAB [Suspect]
     Indication: POLYCHONDRITIS
  3. PREDNISONE [Concomitant]
     Indication: POLYCHONDRITIS
  4. METHYLTREXATE [Concomitant]

REACTIONS (6)
  - DYSPHAGIA [None]
  - DYSPNOEA [None]
  - HEPATIC ENZYME INCREASED [None]
  - JOINT SWELLING [None]
  - LOCAL SWELLING [None]
  - OFF LABEL USE [None]
